FAERS Safety Report 20994294 (Version 2)
Quarter: 2022Q3

REPORT INFORMATION
  Report Type: Spontaneous
  Country: US (occurrence: US)
  Receive Date: 20220622
  Receipt Date: 20220728
  Transmission Date: 20221027
  Serious: Yes (Other)
  Sender: FDA-Public Use
  Company Number: None

PATIENT
  Age: 47 Year
  Sex: Female

DRUGS (10)
  1. DEXAMETHASONE [Suspect]
     Active Substance: DEXAMETHASONE
     Indication: Liver transplant
     Dosage: UNK (A TEST DOSE (10% OF TOTAL DAILY DOSE) PRIOR TO THE REMAINING FULL DOSE) (FRESENIUS KABI)
     Route: 042
  2. DEXAMETHASONE [Suspect]
     Active Substance: DEXAMETHASONE
     Dosage: UNK
     Route: 048
  3. PREDNISOLONE [Suspect]
     Active Substance: PREDNISOLONE
     Indication: Liver transplant
     Dosage: UNK (TAPER)
     Route: 048
  4. PREDNISOLONE [Suspect]
     Active Substance: PREDNISOLONE
     Dosage: UNK (ATTEMPT AT TRANSITION )
     Route: 048
  5. PREDNISOLONE [Suspect]
     Active Substance: PREDNISOLONE
     Dosage: 20 MILLIGRAM DAILY (A TRIAL OF A LOW DOSE; TOLERATED)
     Route: 048
  6. METHYLPREDNISOLONE SODIUM SUCCINATE [Suspect]
     Active Substance: METHYLPREDNISOLONE SODIUM SUCCINATE
     Indication: Liver transplant
     Dosage: UNK (INDUCTION)
     Route: 042
  7. METHYLPREDNISOLONE SODIUM SUCCINATE [Suspect]
     Active Substance: METHYLPREDNISOLONE SODIUM SUCCINATE
     Indication: Transplant rejection
     Dosage: UNK (ADDITIONAL DOSES)
     Route: 042
  8. METHYLPREDNISOLONE SODIUM SUCCINATE [Suspect]
     Active Substance: METHYLPREDNISOLONE SODIUM SUCCINATE
     Dosage: UNK (ON POD 16)
     Route: 042
  9. METHYLPREDNISOLONE SODIUM SUCCINATE [Suspect]
     Active Substance: METHYLPREDNISOLONE SODIUM SUCCINATE
     Dosage: 1 GRAM (1 G METHYLPREDNISOLONE SODIUM SUCCINATE IN 50 ML OF NORMAL SALINE AT A RATE OF 146 ML/H)
     Route: 042
  10. SODIUM CHLORIDE [Concomitant]
     Active Substance: SODIUM CHLORIDE
     Indication: Vehicle solution use
     Dosage: 50 MILLILITER (1 G METHYLPREDNISOLONE SODIUM SUCCINATE IN 50 ML OF NORMAL SALINE AT A RATE OF 146 ML
     Route: 042

REACTIONS (3)
  - Anxiety [Recovered/Resolved]
  - Gastrointestinal disorder [Unknown]
  - Tremor [Recovered/Resolved]
